FAERS Safety Report 15664215 (Version 2)
Quarter: 2018Q4

REPORT INFORMATION
  Report Type: Report from Study
  Country: JO (occurrence: JO)
  Receive Date: 20181128
  Receipt Date: 20181130
  Transmission Date: 20190205
  Serious: Yes (Death)
  Sender: FDA-Public Use
  Company Number: JO-EMD SERONO-9054794

PATIENT

DRUGS (1)
  1. REBIF [Suspect]
     Active Substance: INTERFERON BETA-1A
     Indication: MULTIPLE SCLEROSIS
     Route: 064

REACTIONS (3)
  - Foetal movement disorder [Fatal]
  - Foetal exposure during pregnancy [Recovered/Resolved]
  - Hydrocephalus [Fatal]

NARRATIVE: CASE EVENT DATE: 2018
